FAERS Safety Report 6334463-1 (Version None)
Quarter: 2009Q3

REPORT INFORMATION
  Report Type: 
  Country: None (occurrence: None)
  Receive Date: 20090827
  Receipt Date: 20090817
  Transmission Date: 20100115
  Serious: Yes (Hospitalization)
  Sender: FDA-Public Use
  Company Number: FPI-09-TEV-0124

PATIENT
  Age: 12 Year
  Sex: Male

DRUGS (2)
  1. TEV-TROPIN [Suspect]
     Indication: DWARFISM
     Dosage: 48 UNITS DAILY; SC
     Route: 058
     Dates: start: 20090501, end: 20090504
  2. CONCETRA (METHYLPHENIDATE) [Concomitant]

REACTIONS (5)
  - BLOOD GLUCOSE FLUCTUATION [None]
  - DIZZINESS [None]
  - HYPOPHAGIA [None]
  - NAUSEA [None]
  - VOMITING [None]
